FAERS Safety Report 10290278 (Version 2)
Quarter: 2014Q1

REPORT INFORMATION
  Report Type: Spontaneous
  Country: US (occurrence: None)
  Receive Date: 20120817
  Receipt Date: 20130815
  Transmission Date: 20141002
  Serious: Yes (Other)
  Sender: FDA-Public Use
  Company Number: ADR-2012-00612

PATIENT
  Sex: Male

DRUGS (3)
  1. BACLOFEN INTRATHECAL [Suspect]
     Indication: PAIN
     Route: 037
  2. BACLOFEN INTRATHECAL [Suspect]
     Route: 037
  3. CLONIDINE INTRATHECAL [Concomitant]

REACTIONS (12)
  - Headache [None]
  - Drug withdrawal syndrome [None]
  - Tremor [None]
  - Back pain [None]
  - Pyrexia [None]
  - Chills [None]
  - Hyperhidrosis [None]
  - Nausea [None]
  - Pain [None]
  - Musculoskeletal stiffness [None]
  - Insomnia [None]
  - Fatigue [None]
